FAERS Safety Report 9084362 (Version 1)
Quarter: 2013Q1

REPORT INFORMATION
  Report Type: Report from Study
  Country: US (occurrence: US)
  Receive Date: 20130131
  Receipt Date: 20130131
  Transmission Date: 20140127
  Serious: No
  Sender: FDA-Public Use
  Company Number: US-ABBOTT-12P-163-0989838-00

PATIENT
  Age: 27 Year
  Sex: Female

DRUGS (7)
  1. HUMIRA [Suspect]
     Indication: PSORIASIS
     Dates: start: 20120921
  2. METHOTREXATE [Concomitant]
     Indication: PSORIASIS
     Dosage: WEEKLY
  3. SERTRALINE [Concomitant]
     Indication: ANXIETY
     Dosage: DAILY
  4. LORAZEPAM [Concomitant]
     Indication: ANXIETY
  5. SPRINTEC [Concomitant]
     Indication: CONTRACEPTION
     Dosage: DAILY
  6. FOLIC ACID [Concomitant]
     Indication: PRODUCT USED FOR UNKNOWN INDICATION
  7. VITAMIN C [Concomitant]
     Indication: VITAMIN SUPPLEMENTATION

REACTIONS (2)
  - Anxiety [Unknown]
  - Injection site pain [Recovered/Resolved]
